FAERS Safety Report 17386766 (Version 1)
Quarter: 2020Q3

REPORT INFORMATION
  Report Type: Spontaneous
  Country: US (occurrence: US)
  Receive Date: 20200206
  Receipt Date: 20200206
  Transmission Date: 20201104
  Serious: No
  Sender: FDA-Public Use
  Company Number: NVSC2020US030100

PATIENT
  Age: 39 Year
  Sex: Male

DRUGS (2)
  1. OPIUM. [Suspect]
     Active Substance: OPIUM
     Indication: NEUROENDOCRINE CARCINOMA
     Dosage: UNK
     Route: 065
  2. OCTREOTIDE. [Suspect]
     Active Substance: OCTREOTIDE
     Indication: NEUROENDOCRINE CARCINOMA
     Dosage: UNK
     Route: 065

REACTIONS (1)
  - Drug ineffective [Unknown]
